FAERS Safety Report 17194353 (Version 3)
Quarter: 2020Q1

REPORT INFORMATION
  Report Type: Spontaneous
  Country: HU (occurrence: HU)
  Receive Date: 20191224
  Receipt Date: 20200211
  Transmission Date: 20200409
  Serious: Yes (Hospitalization, Other)
  Sender: FDA-Public Use
  Company Number: HU-CELLTRION INC.-2019HU027529

PATIENT

DRUGS (7)
  1. RITUXIMAB (UNKNOWN) [Suspect]
     Active Substance: RITUXIMAB
     Indication: CENTRAL NERVOUS SYSTEM LYMPHOMA
     Dosage: UNK, CYCLIC (AS A PART OF MATRIX REGIMEN; LATER 2 MORE CYCLES WERE ADMINISTERED)
     Route: 065
  2. METHOTREXATE. [Suspect]
     Active Substance: METHOTREXATE
     Indication: CENTRAL NERVOUS SYSTEM LYMPHOMA
     Dosage: UNK, CYCLIC (AS A PART OF MATRIX REGIMEN; LATER 2 MORE CYCLES WERE ADMINISTERED)
     Route: 065
  3. LAMIVUDINE. [Concomitant]
     Active Substance: LAMIVUDINE
     Indication: ANTIVIRAL PROPHYLAXIS
     Dosage: UNK (ACTION TAKEN: THERAPY COMPLETED)
     Route: 065
  4. ENTECAVIR. [Concomitant]
     Active Substance: ENTECAVIR
     Indication: ANTIVIRAL PROPHYLAXIS
     Dosage: UNK (ACTION TAKEN: THERAPY COMPLETED)
     Route: 065
  5. CYTARABINE. [Suspect]
     Active Substance: CYTARABINE
     Indication: CENTRAL NERVOUS SYSTEM LYMPHOMA
     Dosage: UNK, CYCLIC (AS A PART OF MATRIX REGIMEN; LATER 2 MORE CYCLES WERE ADMINISTERED)
     Route: 065
  6. THIOTEPA. [Suspect]
     Active Substance: THIOTEPA
     Indication: CENTRAL NERVOUS SYSTEM LYMPHOMA
     Dosage: UNK, CYCLIC (AS A PART OF MATRIX REGIMEN; LATER 2 MORE CYCLES WERE ADMINISTERED)
     Route: 065
  7. ENTECAVIR. [Concomitant]
     Active Substance: ENTECAVIR
     Indication: HEPATITIS B REACTIVATION

REACTIONS (2)
  - Hepatitis C [Recovered/Resolved]
  - Cholestasis [Recovered/Resolved]
